FAERS Safety Report 5067322-5 (Version None)
Quarter: 2006Q3

REPORT INFORMATION
  Report Type: 
  Country: None (occurrence: None)
  Receive Date: 20060714
  Receipt Date: 20060614
  Transmission Date: 20061208
  Serious: No
  Sender: FDA-Public Use
  Company Number: 2006SP002438

PATIENT
  Sex: Female

DRUGS (4)
  1. LUNESTA [Suspect]
     Dosage: ORAL
     Route: 048
  2. PAXIL [Concomitant]
  3. FLEXERIL [Concomitant]
  4. ULTRAM [Concomitant]

REACTIONS (3)
  - AMNESIA [None]
  - PARASOMNIA [None]
  - SLEEP WALKING [None]
